FAERS Safety Report 22532851 (Version 1)
Quarter: 2023Q2

REPORT INFORMATION
  Report Type: Spontaneous
  Country: IT (occurrence: IT)
  Receive Date: 20230607
  Receipt Date: 20230607
  Transmission Date: 20230721
  Serious: Yes (Hospitalization)
  Sender: FDA-Public Use
  Company Number: IT-MINISAL02-572496

PATIENT
  Age: 77 Year
  Sex: Female

DRUGS (1)
  1. CASPOFUNGIN [Suspect]
     Active Substance: CASPOFUNGIN
     Indication: Systemic mycosis
     Dosage: 70 MG, QD
     Route: 042

REACTIONS (2)
  - Inflammation [Unknown]
  - Drug ineffective [Unknown]
